FAERS Safety Report 8922709 (Version 2)
Quarter: 2013Q1

REPORT INFORMATION
  Report Type: Spontaneous
  Country: GB (occurrence: GB)
  Receive Date: 20121125
  Receipt Date: 20130124
  Transmission Date: 20140127
  Serious: Yes (Hospitalization)
  Sender: FDA-Public Use
  Company Number: GB-SANOFI-AVENTIS-2012SA083954

PATIENT
  Age: 59 Year
  Sex: Female
  Weight: 52 kg

DRUGS (10)
  1. TELFAST [Suspect]
     Indication: PRURITUS GENERALISED
     Route: 048
     Dates: start: 20121107
  2. OMEPRAZOLE [Concomitant]
     Indication: PROPHYLAXIS
     Route: 048
     Dates: start: 2006
  3. FOLIC ACID [Concomitant]
     Route: 048
  4. ADCAL-D3 [Concomitant]
     Indication: MINERAL SUPPLEMENTATION
     Dosage: 750 MG AND 5 MCG
     Route: 048
  5. PREDNISOLONE [Concomitant]
     Dosage: 5 MG ONCE EVERY OTHER DAY
     Route: 048
  6. CROTAMITON [Concomitant]
     Route: 061
  7. CANDESARTAN CILEXETIL [Concomitant]
     Indication: BLOOD PRESSURE
     Route: 048
  8. DARBEPOETIN ALFA [Concomitant]
     Indication: MINERAL SUPPLEMENTATION
     Dosage: EVERY FORTNIGHT
  9. DIPROBASE CREAM [Concomitant]
     Route: 061
  10. DOXAZOSIN MESILATE [Concomitant]

REACTIONS (3)
  - Paraesthesia [Not Recovered/Not Resolved]
  - Pain [Unknown]
  - Muscular weakness [Not Recovered/Not Resolved]
